FAERS Safety Report 7079152-3 (Version None)
Quarter: 2010Q4

REPORT INFORMATION
  Report Type: 
  Country: None (occurrence: None)
  Receive Date: 20101102
  Receipt Date: 20101028
  Transmission Date: 20110411
  Serious: Yes (Congenital Anomaly)
  Sender: FDA-Public Use
  Company Number: A0889817A

PATIENT
  Sex: Female

DRUGS (2)
  1. PAXIL [Suspect]
     Route: 065
  2. PRENATAL VITAMINS [Concomitant]

REACTIONS (19)
  - ANAEMIA NEONATAL [None]
  - APNOEA [None]
  - CONGENITAL ANAEMIA [None]
  - DRUG EXPOSURE DURING PREGNANCY [None]
  - FOOD INTOLERANCE [None]
  - HYPOCALCAEMIA [None]
  - HYPOGLYCAEMIA [None]
  - HYPOVOLAEMIA [None]
  - INTRAVENTRICULAR HAEMORRHAGE [None]
  - JAUNDICE [None]
  - LUNG DISORDER [None]
  - NODULE [None]
  - PATENT DUCTUS ARTERIOSUS [None]
  - POLYDACTYLY [None]
  - PREMATURE BABY [None]
  - RESPIRATORY DISTRESS [None]
  - RETINOPATHY OF PREMATURITY [None]
  - SEPSIS [None]
  - URINARY TRACT INFECTION [None]
